FAERS Safety Report 11828006 (Version 4)
Quarter: 2016Q2

REPORT INFORMATION
  Report Type: Spontaneous
  Country: JP (occurrence: JP)
  Receive Date: 20151211
  Receipt Date: 20160429
  Transmission Date: 20160815
  Serious: Yes (Life-Threatening, Hospitalization, Disabling)
  Sender: FDA-Public Use
  Company Number: JP-009507513-1511JPN009938

PATIENT
  Age: 70 Year
  Sex: Female
  Weight: 68 kg

DRUGS (14)
  1. REBETOL [Suspect]
     Active Substance: RIBAVIRIN
     Dosage: 600 MG, DAILY, DIVIDED DOSE FREQUENCY UNKNOWN
     Route: 048
     Dates: start: 20151002, end: 20151029
  2. LACTULOSE. [Concomitant]
     Active Substance: LACTULOSE
     Dosage: 60 ML, DAILY, DIVIDED DOSE FREQUENCY UNKNOWN; FORMULATION: PER ORAL FORMULATION
     Route: 048
  3. SENNOSIDES. [Concomitant]
     Active Substance: SENNOSIDES
     Dosage: DAILY DOSAGE UNKNOWN; FORMULATION: PER ORAL FORMULATION
     Route: 048
  4. AMINOLEBAN EN [Concomitant]
     Active Substance: UNSPECIFIED INGREDIENT
     Dosage: 50 G, QD, DIVIDED DOSE FREQUENCY UNKNOWN; FORMULATION: PER ORAL FORMULATION
     Route: 048
  5. REBETOL [Suspect]
     Active Substance: RIBAVIRIN
     Dosage: DAILY DOSE UNKNOWN
     Route: 048
  6. AMITIZA [Suspect]
     Active Substance: LUBIPROSTONE
     Indication: CONSTIPATION
     Dosage: 48 MICROGRAM, DAILY, DIVIDED DOSE FRQUENCY UNKNOWN; FORMULATION: PER ORAL FORMULATION
     Route: 048
     Dates: start: 20151016, end: 20151030
  7. L CARTIN [Suspect]
     Active Substance: LEVOCARNITINE HYDROCHLORIDE
     Indication: CARNITINE DEFICIENCY
     Dosage: 1500 MG, DAILY, DIVIDED DOSE FREQUENCY UNKNOWN. FORMULATION: POR
     Route: 048
     Dates: start: 20151016
  8. PARIET [Concomitant]
     Active Substance: RABEPRAZOLE SODIUM
     Dosage: 10 MG, DAILY, DIVIDED DOSE FREQUENCY UNKNOWN; FORMULATION: PER ORAL FORMULATION
     Route: 048
  9. ADALAT CC [Concomitant]
     Active Substance: NIFEDIPINE
     Dosage: 40 MG, QD, DIVIDED DOSE FRQUENCY UNKNOWN; FORMULATION: PER ORAL FORMULATION
     Route: 048
  10. REBETOL [Suspect]
     Active Substance: RIBAVIRIN
     Indication: HEPATIC CIRRHOSIS
     Dosage: 200 MG, DAILY, DIVIDED DOSE FRQUENCY UNKNOWN
     Route: 048
     Dates: start: 20151106, end: 20151111
  11. SOVALDI [Suspect]
     Active Substance: SOFOSBUVIR
     Indication: HEPATIC CIRRHOSIS
     Dosage: 400 MG, DAILY, DIVIDED DOSE FREQUENCY UNKNOWN
     Route: 048
     Dates: start: 20151002, end: 20151111
  12. LIVACT [Concomitant]
     Active Substance: AMINO ACIDS
     Dosage: 3 DOSAGE FORMS, DAILY, DIVIDED DOSE FRQUENCY UNKONWN; FORMULATION: PER ORAL FORMULATION
     Route: 048
  13. REBETOL [Suspect]
     Active Substance: RIBAVIRIN
     Dosage: 400 MG, DAILY, DIVIDED DOSE FREQUENCY UNKNOWN
     Route: 048
     Dates: start: 20151030, end: 20151105
  14. PROHEPARUM [Concomitant]
     Active Substance: CHOLINE BITARTRATE\CYSTEINE\INOSITOL\MAMMAL LIVER
     Dosage: DAILY DOSAGE UNKNOWN; FORMULATION: PER ORAL FORMULATION
     Route: 048

REACTIONS (11)
  - Oliguria [Unknown]
  - Anaemia [Recovering/Resolving]
  - Hypertrophic cardiomyopathy [Recovering/Resolving]
  - Dyspnoea [Recovering/Resolving]
  - Generalised oedema [Recovering/Resolving]
  - Cardiac failure [Recovering/Resolving]
  - Decreased appetite [Recovering/Resolving]
  - Carnitine decreased [Recovering/Resolving]
  - Hepatitis C RNA positive [Unknown]
  - Abdominal distension [Recovering/Resolving]
  - Constipation [Recovering/Resolving]

NARRATIVE: CASE EVENT DATE: 20151016
